FAERS Safety Report 14465596 (Version 1)
Quarter: 2018Q1

REPORT INFORMATION
  Report Type: Spontaneous
  Country: US (occurrence: US)
  Receive Date: 20180131
  Receipt Date: 20180131
  Transmission Date: 20180509
  Serious: No
  Sender: FDA-Public Use
  Company Number: US-ASTRAZENECA-2017SE53744

PATIENT
  Age: 28527 Day
  Sex: Female

DRUGS (2)
  1. TUDORZA PRESSAIR [Suspect]
     Active Substance: ACLIDINIUM BROMIDE
     Indication: ASTHMA
     Dosage: ONE INHALATION, TWICE DAILY
     Route: 055
     Dates: start: 20170227, end: 20171114
  2. SYMBICORT [Suspect]
     Active Substance: BUDESONIDE\FORMOTEROL FUMARATE DIHYDRATE
     Indication: ASTHMA
     Dosage: TWO INHALATIONS, TWICE A DAY
     Route: 055
     Dates: start: 20171127

REACTIONS (2)
  - Device malfunction [Unknown]
  - Dizziness [Unknown]

NARRATIVE: CASE EVENT DATE: 20170502
